FAERS Safety Report 6329981-6 (Version None)
Quarter: 2009Q3

REPORT INFORMATION
  Report Type: 
  Country: None (occurrence: None)
  Receive Date: 20090825
  Receipt Date: 20090814
  Transmission Date: 20100115
  Serious: Yes (Hospitalization)
  Sender: FDA-Public Use
  Company Number: GXKR2009PH09236

PATIENT
  Age: 27 Year
  Sex: Female

DRUGS (1)
  1. RIFAMPICIN+ISONIAZID+PYRAZINAMIDE+ETHAMBUTOL (NGX)(ETHAMBUTOL DIHYDROC [Suspect]
     Indication: TUBERCULOSIS
     Dosage: 1 DF, TID, ORAL
     Route: 048

REACTIONS (4)
  - COUGH [None]
  - LYMPHADENOPATHY [None]
  - PYREXIA [None]
  - RASH [None]
